FAERS Safety Report 5283180-8 (Version None)
Quarter: 2007Q2

REPORT INFORMATION
  Report Type: 
  Country: None (occurrence: None)
  Receive Date: 20070402
  Receipt Date: 20070329
  Transmission Date: 20071010
  Serious: Yes (Other)
  Sender: FDA-Public Use
  Company Number: US-GLAXOSMITHKLINE-A0644683A

PATIENT
  Age: 48 Year
  Sex: Female

DRUGS (2)
  1. LAPATINIB [Suspect]
     Dosage: 1500MG PER DAY
     Route: 048
  2. AUGMENTIN '125' [Suspect]
     Dates: start: 20070101

REACTIONS (1)
  - HEPATIC ENZYME INCREASED [None]
